FAERS Safety Report 8679844 (Version 5)
Quarter: 2012Q4

REPORT INFORMATION
  Report Type: 
  Country: US (occurrence: US)
  Receive Date: 20120724
  Receipt Date: 20120906
  Transmission Date: 20130627
  Serious: Yes (Other)
  Sender: FDA-Public Use
  Company Number: US-PFIZER INC-2012175280

PATIENT
  Age: 42 Year
  Sex: Female
  Weight: 58.05 kg

DRUGS (11)
  1. NEURONTIN [Suspect]
     Indication: CONVULSION
     Dosage: 600 mg, 4x/day
     Dates: start: 2001
  2. NEURONTIN [Suspect]
     Indication: NEUROPATHY PERIPHERAL
  3. VISTARIL [Suspect]
     Dosage: 50 mg, 4x/day
  4. SYNTHROID [Concomitant]
     Indication: HYPOTHYROIDISM
     Dosage: 0.88 ug, 1x/day
  5. DEMADEX [Concomitant]
     Indication: OEDEMA
     Dosage: 20 mg, as needed
  6. SOMA [Concomitant]
     Indication: MUSCLE SPASMS
     Dosage: 350 mg, 4x/day
  7. ATENOLOL [Concomitant]
     Indication: HYPERTENSION
     Dosage: 100 mg, 2x/day
  8. CLONIDINE [Concomitant]
     Indication: ARRHYTHMIA
     Dosage: 0.2 mg, 3x/day
  9. OXYCODONE [Concomitant]
     Indication: PAIN
     Dosage: 10 mg, as needed
  10. NEXIUM [Concomitant]
     Indication: GASTROOESOPHAGEAL REFLUX DISEASE
     Dosage: UNK, 2x/day
  11. LIDOCAINE [Concomitant]
     Indication: PAIN
     Dosage: UNK, as needed

REACTIONS (3)
  - Breast cancer [Unknown]
  - Breast cancer recurrent [Unknown]
  - Vulval cancer [Unknown]
